FAERS Safety Report 5671838-8 (Version None)
Quarter: 2008Q1

REPORT INFORMATION
  Report Type: 
  Country: None (occurrence: None)
  Receive Date: 20080314
  Receipt Date: 20080311
  Transmission Date: 20080703
  Serious: Yes (Death, Hospitalization)
  Sender: FDA-Public Use
  Company Number: 2008-00832

PATIENT
  Age: 57 Year
  Sex: Male
  Weight: 79 kg

DRUGS (6)
  1. VELCADE [Suspect]
     Indication: MULTIPLE MYELOMA
     Dosage: 1.30 MG/M2, INTRAVENOUS
     Route: 042
     Dates: start: 20071009, end: 20080221
  2. THALIDOMIDE [Suspect]
     Indication: MULTIPLE MYELOMA
     Dosage: 200.00 MG, ORAL
     Route: 048
     Dates: start: 20071009, end: 20080201
  3. DEXAMETHASONE TAB [Suspect]
     Indication: MULTIPLE MYELOMA
     Dosage: 40.00 MG, ORAL
     Route: 048
     Dates: start: 20071009, end: 20080214
  4. CLODRONIC ACID (CLODRONIC ACID) [Concomitant]
  5. LYSINE ACETYLSALICYLATE [Concomitant]
  6. LOPERAMIDE [Concomitant]

REACTIONS (1)
  - PNEUMONIA [None]
